FAERS Safety Report 6252323-1 (Version None)
Quarter: 2009Q2

REPORT INFORMATION
  Report Type: 
  Country: None (occurrence: None)
  Receive Date: 20090630
  Receipt Date: 20090630
  Transmission Date: 20091009
  Serious: Yes (Life-Threatening, Hospitalization)
  Sender: FDA-Public Use
  Company Number: None

PATIENT
  Sex: Female
  Weight: 74.8435 kg

DRUGS (1)
  1. ELMIRON [Suspect]
     Dosage: 100 MG 3 X A DAY
     Dates: start: 20090521

REACTIONS (3)
  - ANAEMIA [None]
  - HAEMORRHAGE URINARY TRACT [None]
  - PAIN [None]
